FAERS Safety Report 11390706 (Version 1)
Quarter: 2015Q3

REPORT INFORMATION
  Report Type: Spontaneous
  Country: US (occurrence: US)
  Receive Date: 20150818
  Receipt Date: 20150818
  Transmission Date: 20151125
  Serious: No
  Sender: FDA-Public Use
  Company Number: US-ROCHE-1381320

PATIENT
  Age: 47 Year
  Sex: Male

DRUGS (3)
  1. PEGASYS [Suspect]
     Active Substance: PEGINTERFERON ALFA-2A
     Indication: CHRONIC HEPATITIS C
     Route: 058
     Dates: start: 20131210
  2. RIBASPHERE [Suspect]
     Active Substance: RIBAVIRIN
     Indication: CHRONIC HEPATITIS C
     Dosage: TWO DIVIDED DOSES
     Route: 048
     Dates: start: 20131210
  3. TELAPREVIR [Suspect]
     Active Substance: TELAPREVIR
     Indication: CHRONIC HEPATITIS C
     Route: 048
     Dates: start: 20131210, end: 20140224

REACTIONS (9)
  - Device issue [Unknown]
  - Dysgeusia [Unknown]
  - Headache [Recovered/Resolved]
  - Dizziness [Unknown]
  - Diarrhoea [Recovered/Resolved]
  - Dry mouth [Unknown]
  - Pruritus [Recovered/Resolved]
  - Pruritus [Unknown]
  - Insomnia [Unknown]

NARRATIVE: CASE EVENT DATE: 20140123
